FAERS Safety Report 11966484 (Version 1)
Quarter: 2016Q1

REPORT INFORMATION
  Report Type: Spontaneous
  Country: CN (occurrence: CN)
  Receive Date: 20160127
  Receipt Date: 20160127
  Transmission Date: 20160526
  Serious: Yes (Hospitalization, Other)
  Sender: FDA-Public Use
  Company Number: CN-PFIZER INC-2016007715

PATIENT
  Age: 78 Year
  Sex: Male

DRUGS (1)
  1. LIPITOR [Suspect]
     Active Substance: ATORVASTATIN CALCIUM
     Indication: CEREBRAL INFARCTION
     Route: 048

REACTIONS (4)
  - Myocardial infarction [Recovered/Resolved]
  - Low density lipoprotein decreased [Unknown]
  - Hemiparesis [Recovered/Resolved]
  - Asthenia [Recovered/Resolved]
